FAERS Safety Report 8283410-4 (Version None)
Quarter: 2012Q2

REPORT INFORMATION
  Report Type: 
  Country: None (occurrence: None)
  Receive Date: 20120413
  Receipt Date: 20120411
  Transmission Date: 20120825
  Serious: Yes (Death, Hospitalization)
  Sender: FDA-Public Use
  Company Number: US-VIROPHARMA INCORPORATED-20120328VANCO2792

PATIENT
  Sex: Male

DRUGS (1)
  1. VANCOMYCIN HYDROCHLORIDE [Suspect]
     Indication: CLOSTRIDIAL INFECTION
     Route: 048
     Dates: start: 20110101, end: 20120225

REACTIONS (1)
  - OESOPHAGEAL CARCINOMA [None]
